FAERS Safety Report 12766371 (Version 1)
Quarter: 2016Q3

REPORT INFORMATION
  Report Type: Spontaneous
  Country: US (occurrence: US)
  Receive Date: 20160921
  Receipt Date: 20160921
  Transmission Date: 20161109
  Serious: No
  Sender: FDA-Public Use
  Company Number: US-BAUSCH-BL-2016-011221

PATIENT
  Age: 56 Year
  Sex: Female
  Weight: 79 kg

DRUGS (7)
  1. CLONAZEPAM. [Concomitant]
     Active Substance: CLONAZEPAM
     Indication: ANXIETY
     Dosage: 1 TABLET DAILY WHEN NEEDED
     Route: 048
  2. CLONAZEPAM. [Concomitant]
     Active Substance: CLONAZEPAM
     Indication: SLEEP DISORDER
  3. HYDROCHLOROTHIAZIDE. [Concomitant]
     Active Substance: HYDROCHLOROTHIAZIDE
     Indication: PALPITATIONS
     Route: 048
     Dates: start: 2015
  4. EFUDEX [Suspect]
     Active Substance: FLUOROURACIL
     Indication: PIGMENTATION DISORDER
     Dosage: ONE APPLICATION, 40 GM TUBE
     Route: 061
     Dates: start: 20160127, end: 2016
  5. RELPAX [Concomitant]
     Active Substance: ELETRIPTAN HYDROBROMIDE
     Indication: MIGRAINE
     Route: 048
  6. CLARITIN [Concomitant]
     Active Substance: LORATADINE
     Indication: PRODUCT USED FOR UNKNOWN INDICATION
     Route: 048
  7. MAGNESIUM [Concomitant]
     Active Substance: MAGNESIUM
     Indication: PRODUCT USED FOR UNKNOWN INDICATION
     Route: 048
     Dates: start: 20160127, end: 20160217

REACTIONS (1)
  - Hepatic enzyme increased [Not Recovered/Not Resolved]

NARRATIVE: CASE EVENT DATE: 20160201
